FAERS Safety Report 9403006 (Version 1)
Quarter: 2013Q3

REPORT INFORMATION
  Report Type: Spontaneous
  Country: DE (occurrence: DE)
  Receive Date: 20130716
  Receipt Date: 20130716
  Transmission Date: 20140515
  Serious: Yes (Death, Other)
  Sender: FDA-Public Use
  Company Number: DE-BRISTOL-MYERS SQUIBB COMPANY-18903534

PATIENT
  Age: 47 Year
  Sex: Male

DRUGS (2)
  1. ABILIFY [Suspect]
     Indication: SCHIZOPHRENIA
  2. LEPONEX [Suspect]

REACTIONS (3)
  - Completed suicide [Fatal]
  - Schizophrenia [Unknown]
  - Heart rate increased [Recovering/Resolving]
